FAERS Safety Report 8624480-0 (Version None)
Quarter: 2012Q3

REPORT INFORMATION
  Report Type: 
  Country: None (occurrence: None)
  Receive Date: 20120827
  Receipt Date: 20120822
  Transmission Date: 20120928
  Serious: Yes (Death, Life-Threatening, Hospitalization)
  Sender: FDA-Public Use
  Company Number: PL-CELGENEUS-129-CCAZA-12072739

PATIENT
  Sex: Male
  Weight: 79 kg

DRUGS (2)
  1. POTASSIUM CHLORIDE [Concomitant]
     Route: 065
  2. AZACITIDINE [Suspect]
     Route: 058
     Dates: start: 20120703, end: 20120709

REACTIONS (2)
  - PSEUDOMEMBRANOUS COLITIS [None]
  - PYREXIA [None]
